FAERS Safety Report 8421812-3 (Version None)
Quarter: 2012Q2

REPORT INFORMATION
  Report Type: 
  Country: None (occurrence: None)
  Receive Date: 20120323
  Receipt Date: 20111215
  Transmission Date: 20120825
  Serious: Yes (Other)
  Sender: FDA-Public Use
  Company Number: 163-21880-11122166

PATIENT
  Age: 60 Year
  Sex: Male
  Weight: 59.4212 kg

DRUGS (6)
  1. REVLIMID [Suspect]
     Indication: MULTIPLE MYELOMA
     Dosage: 7.1429 MG, 2 IN 1 D, PO ; 7.1429 MG, 2 IN 1 WK, PO
     Route: 048
     Dates: start: 20110601, end: 20111224
  2. REVLIMID [Suspect]
     Indication: MULTIPLE MYELOMA
     Dosage: 7.1429 MG, 2 IN 1 D, PO ; 7.1429 MG, 2 IN 1 WK, PO
     Route: 048
     Dates: start: 20100601, end: 20100101
  3. APAP/CODEINE (PANADEINE CO) [Concomitant]
  4. WARFARIN SODIUM [Concomitant]
  5. ACYCLOVIR [Concomitant]
  6. BUPROPION HCL [Concomitant]

REACTIONS (1)
  - BLOOD CREATININE INCREASED [None]
